FAERS Safety Report 5845794-3 (Version None)
Quarter: 2008Q3

REPORT INFORMATION
  Report Type: 
  Country: None (occurrence: None)
  Receive Date: 20080814
  Receipt Date: 20080730
  Transmission Date: 20090109
  Serious: Yes (Other)
  Sender: FDA-Public Use
  Company Number: IE-GENENTECH-264241

PATIENT
  Sex: Female
  Weight: 85.578 kg

DRUGS (7)
  1. XOLAIR [Suspect]
     Indication: ASTHMA
     Dosage: 300 MG, 1/MONTH
     Dates: start: 20080422
  2. SERETIDE [Concomitant]
     Indication: DRUG USE FOR UNKNOWN INDICATION
  3. SINGULAIR [Concomitant]
     Indication: DRUG USE FOR UNKNOWN INDICATION
  4. THEOPHYLLINE [Concomitant]
     Indication: DRUG USE FOR UNKNOWN INDICATION
  5. XANAX [Concomitant]
     Indication: DEPRESSION
     Dosage: 1 TABLET, QHS
  6. LEXAPRO [Concomitant]
     Indication: DRUG USE FOR UNKNOWN INDICATION
  7. TECHNETIUM-99M MACROAGGREGATED ALBUMIN [Concomitant]
     Indication: DRUG USE FOR UNKNOWN INDICATION

REACTIONS (1)
  - WEIGHT INCREASED [None]
